FAERS Safety Report 7828885-7 (Version None)
Quarter: 2011Q4

REPORT INFORMATION
  Report Type: 
  Country: None (occurrence: None)
  Receive Date: 20111020
  Receipt Date: 20111007
  Transmission Date: 20120403
  Serious: Yes (Other)
  Sender: FDA-Public Use
  Company Number: US-BAYER-2011-027201

PATIENT
  Age: 24 Year
  Sex: Female
  Weight: 48 kg

DRUGS (11)
  1. FOLIC ACID [Concomitant]
  2. YASMIN [Suspect]
     Indication: ORAL CONTRACEPTION
     Dates: start: 20070301
  3. LAMICTAL [Concomitant]
  4. YAZ [Suspect]
     Indication: ORAL CONTRACEPTION
     Dosage: UNK
     Route: 048
     Dates: start: 20080301, end: 20100101
  5. ORTHO TRI-CYCLEN [Concomitant]
  6. LORTAB [Concomitant]
  7. BENZOYL PEROXIDE [Concomitant]
  8. YAZ [Suspect]
     Indication: ACNE
  9. YASMIN [Suspect]
     Indication: ACNE
  10. LAMOTRIGINE [Concomitant]
     Dosage: UNK
     Dates: start: 20090101, end: 20100101
  11. ALLEGRA D 24 HOUR [Concomitant]

REACTIONS (8)
  - PAIN [None]
  - BILIARY COLIC [None]
  - CHOLELITHIASIS [None]
  - ABDOMINAL PAIN [None]
  - INJURY [None]
  - CHOLECYSTITIS CHRONIC [None]
  - NAUSEA [None]
  - VOMITING [None]
